FAERS Safety Report 18572288 (Version 4)
Quarter: 2020Q4

REPORT INFORMATION
  Report Type: Report from Study
  Country: AU (occurrence: AU)
  Receive Date: 20201202
  Receipt Date: 20201223
  Transmission Date: 20210114
  Serious: Yes (Hospitalization, Other)
  Sender: FDA-Public Use
  Company Number: AU-EXELIXIS-XL18420035441

PATIENT
  Age: 54 Year
  Sex: Male
  Weight: 114 kg

DRUGS (14)
  1. XL184 [Suspect]
     Active Substance: CABOZANTINIB
     Indication: RENAL CELL CARCINOMA
     Dosage: 40 MG, QD
     Route: 048
     Dates: start: 20201104, end: 20201207
  2. ASPIRIN. [Concomitant]
     Active Substance: ASPIRIN
  3. NIVOLUMAB [Suspect]
     Active Substance: NIVOLUMAB
     Indication: RENAL CELL CARCINOMA
     Dosage: 3 MG/KG, Q3WEEKS, 4 DOSES
     Route: 042
     Dates: start: 20201104, end: 20201207
  4. OLMESARTAN [Concomitant]
     Active Substance: OLMESARTAN
  5. FENOFIBRATE. [Concomitant]
     Active Substance: FENOFIBRATE
  6. ROSUVASTATIN. [Concomitant]
     Active Substance: ROSUVASTATIN
  7. PREDNISOLONE. [Concomitant]
     Active Substance: PREDNISOLONE
  8. HCTZ [Concomitant]
     Active Substance: HYDROCHLOROTHIAZIDE
  9. AMLODIPINE [Concomitant]
     Active Substance: AMLODIPINE BESYLATE
  10. METOCLOPRAMIDE. [Concomitant]
     Active Substance: METOCLOPRAMIDE
  11. LOPERAMIDE [Concomitant]
     Active Substance: LOPERAMIDE
  12. METOPROLOL. [Concomitant]
     Active Substance: METOPROLOL
  13. MULTIVITAMINS [Concomitant]
     Active Substance: VITAMINS
  14. IPILIMUMAB [Suspect]
     Active Substance: IPILIMUMAB
     Indication: RENAL CELL CARCINOMA
     Dosage: 1 MG/KG, Q3WEEKS, 4 DOSES
     Route: 042
     Dates: start: 20201104, end: 20201207

REACTIONS (2)
  - Pancreatitis [Recovered/Resolved]
  - Immune-mediated hepatitis [Not Recovered/Not Resolved]

NARRATIVE: CASE EVENT DATE: 20201120
